FAERS Safety Report 26169789 (Version 1)
Quarter: 2025Q4

REPORT INFORMATION
  Report Type: Spontaneous
  Country: US (occurrence: None)
  Receive Date: 20251216
  Receipt Date: 20251216
  Transmission Date: 20260118
  Serious: Yes (Death)
  Sender: FDA-CTU
  Company Number: None

PATIENT
  Age: 83 Year
  Sex: Male

DRUGS (2)
  1. TAVNEOS [Suspect]
     Active Substance: AVACOPAN
     Dosage: 10 MG TWICE A DAY ORAL
     Route: 048
     Dates: start: 20251025
  2. TAVNEOS [Concomitant]
     Active Substance: AVACOPAN
     Dates: start: 20251025

REACTIONS (1)
  - Death [None]

NARRATIVE: CASE EVENT DATE: 20251216
